FAERS Safety Report 26148633 (Version 1)
Quarter: 2025Q4

REPORT INFORMATION
  Report Type: Spontaneous
  Country: US (occurrence: US)
  Receive Date: 20251212
  Receipt Date: 20251212
  Transmission Date: 20260117
  Serious: No
  Sender: BAUSCH AND LOMB
  Company Number: US-BAUSCHBL-2025BNL033266

PATIENT
  Age: 85 Year
  Sex: Female

DRUGS (2)
  1. LATANOPROST [Suspect]
     Active Substance: LATANOPROST
     Indication: Glaucoma
     Dosage: STARTED 5 YEARS AGO?EXPIRY DATE: 31-JUL-2028
     Route: 047
  2. BREZTRI AEROSPHERE INHALER [Concomitant]
     Indication: Product used for unknown indication

REACTIONS (11)
  - Dyspnoea [Unknown]
  - Product dose omission in error [Unknown]
  - Product closure removal difficult [Unknown]
  - Product container issue [Unknown]
  - Wrong technique in product usage process [Unknown]
  - Product packaging issue [Unknown]
  - Product delivery mechanism issue [Unknown]
  - Accidental exposure to product [Unknown]
  - Exposure via skin contact [Unknown]
  - Product label issue [Unknown]
  - Product design issue [Unknown]
